FAERS Safety Report 14160565 (Version 3)
Quarter: 2017Q4

REPORT INFORMATION
  Report Type: Spontaneous
  Country: PT (occurrence: PT)
  Receive Date: 20171104
  Receipt Date: 20171208
  Transmission Date: 20180321
  Serious: Yes (Life-Threatening, Hospitalization, Other)
  Sender: FDA-Public Use
  Company Number: PT-SUN PHARMACEUTICAL INDUSTRIES LTD-2017RR-153850

PATIENT
  Age: 46 Year
  Sex: Female

DRUGS (4)
  1. PERINDOPRIL [Suspect]
     Active Substance: PERINDOPRIL
     Indication: HYPERTENSION
     Dosage: 10 MG, DAILY, FOR ABOUT ONE YEAR
     Route: 065
  2. CLEMASTINE [Suspect]
     Active Substance: CLEMASTINE
     Indication: ANAPHYLACTIC REACTION
     Dosage: 2 MG, UNK
     Route: 065
  3. ADRENALINA [Suspect]
     Active Substance: EPINEPHRINE
     Indication: ANAPHYLACTIC REACTION
     Dosage: 1 MG, UNK
     Route: 042
  4. HYDROCORTISONE. [Suspect]
     Active Substance: HYDROCORTISONE
     Indication: ANAPHYLACTIC REACTION
     Dosage: 200 MG, UNK
     Route: 065

REACTIONS (13)
  - Chest pain [Unknown]
  - Sinus tachycardia [Unknown]
  - Medication error [Unknown]
  - Cardiomyopathy [Recovered/Resolved]
  - Coronary artery stenosis [Recovered/Resolved]
  - Swelling [Unknown]
  - Hypotension [Unknown]
  - Incorrect dose administered [Unknown]
  - Incorrect route of drug administration [Recovered/Resolved]
  - Dyspnoea [Unknown]
  - Nausea [Unknown]
  - Tachypnoea [Unknown]
  - Incorrect route of drug administration [Unknown]
